FAERS Safety Report 21298988 (Version 2)
Quarter: 2022Q3

REPORT INFORMATION
  Report Type: Spontaneous
  Country: US (occurrence: US)
  Receive Date: 20220906
  Receipt Date: 20220908
  Transmission Date: 20221027
  Serious: No
  Sender: FDA-Public Use
  Company Number: US-PFIZER INC-202201129494

PATIENT

DRUGS (2)
  1. BACTERIOSTATIC SODIUM CHLORIDE [Suspect]
     Active Substance: SODIUM CHLORIDE
     Dosage: 30 ML(INJECTED IN THEIR FOREHEAD)
     Dates: start: 20220830
  2. BOTOX [Suspect]
     Active Substance: ONABOTULINUMTOXINA
     Indication: Skin wrinkling
     Dosage: 100 ML

REACTIONS (5)
  - Suspected counterfeit product [Unknown]
  - Poor quality product administered [Unknown]
  - Injection site pain [Unknown]
  - Screaming [Unknown]
  - Headache [Unknown]

NARRATIVE: CASE EVENT DATE: 20220830
